FAERS Safety Report 4606489-7 (Version None)
Quarter: 2005Q1

REPORT INFORMATION
  Report Type: 
  Country: None (occurrence: None)
  Receive Date: 20050311
  Receipt Date: 20050304
  Transmission Date: 20050727
  Serious: Yes (Disabling)
  Sender: FDA-Public Use
  Company Number: US-MERCK-0503USA00751

PATIENT
  Sex: Female

DRUGS (6)
  1. VYTORIN [Suspect]
     Indication: BLOOD CHOLESTEROL INCREASED
     Route: 048
     Dates: start: 20050201, end: 20050101
  2. VYTORIN [Suspect]
     Route: 048
     Dates: start: 20050101
  3. METFORMIN [Concomitant]
     Route: 065
  4. CELEBREX [Concomitant]
     Route: 065
  5. HYZAAR [Concomitant]
     Route: 048
  6. FLUOXETINE HYDROCHLORIDE [Concomitant]
     Route: 065

REACTIONS (2)
  - BURNING SENSATION [None]
  - OEDEMA PERIPHERAL [None]
